FAERS Safety Report 7045110-8 (Version None)
Quarter: 2010Q4

REPORT INFORMATION
  Report Type: 
  Country: None (occurrence: None)
  Receive Date: 20101014
  Receipt Date: 20100804
  Transmission Date: 20110411
  Serious: No
  Sender: FDA-Public Use
  Company Number: US-BRISTOL-MYERS SQUIBB COMPANY-15228299

PATIENT

DRUGS (2)
  1. METFORMIN HCL [Suspect]
  2. METFORMIN HCL [Suspect]

REACTIONS (1)
  - DIARRHOEA [None]
